FAERS Safety Report 5906256-8 (Version None)
Quarter: 2008Q4

REPORT INFORMATION
  Report Type: 
  Country: None (occurrence: None)
  Receive Date: 20081002
  Receipt Date: 20080929
  Transmission Date: 20090506
  Serious: Yes (Hospitalization)
  Sender: FDA-Public Use
  Company Number: GB-WYE-G01064808

PATIENT
  Age: 1 Year
  Sex: Female

DRUGS (2)
  1. IBUPROFEN [Suspect]
     Indication: PYREXIA
     Dosage: 5MG/KG
  2. ACETAMINOPHEN [Interacting]
     Indication: PYREXIA
     Dosage: 15MG/KG

REACTIONS (3)
  - DRUG INTERACTION [None]
  - HYPOTHERMIA [None]
  - LOBAR PNEUMONIA [None]
